FAERS Safety Report 4979156-8 (Version None)
Quarter: 2006Q2

REPORT INFORMATION
  Report Type: 
  Country: None (occurrence: None)
  Receive Date: 20060421
  Receipt Date: 20060410
  Transmission Date: 20061013
  Serious: Yes (Other)
  Sender: FDA-Public Use
  Company Number: US-JNJFOC-20050502269

PATIENT
  Sex: Female
  Weight: 78.47 kg

DRUGS (15)
  1. ORTHO EVRA [Suspect]
     Indication: CONTRACEPTION
     Route: 062
  2. PRENATAL [Concomitant]
  3. PRENATAL [Concomitant]
  4. PRENATAL [Concomitant]
  5. PRENATAL [Concomitant]
  6. PRENATAL [Concomitant]
  7. PRENATAL [Concomitant]
  8. PRENATAL [Concomitant]
  9. PRENATAL [Concomitant]
  10. PRENATAL [Concomitant]
  11. PRENATAL [Concomitant]
  12. PRENATAL [Concomitant]
  13. PRENATAL [Concomitant]
  14. PRENATAL [Concomitant]
  15. RANITIDINE [Concomitant]

REACTIONS (4)
  - DRUG EXPOSURE DURING PREGNANCY [None]
  - ENDOMETRIOSIS [None]
  - PREMATURE LABOUR [None]
  - UNINTENDED PREGNANCY [None]
